FAERS Safety Report 5912540-4 (Version None)
Quarter: 2008Q4

REPORT INFORMATION
  Report Type: 
  Country: None (occurrence: None)
  Receive Date: 20081008
  Receipt Date: 20080925
  Transmission Date: 20090506
  Serious: Yes (Death)
  Sender: FDA-Public Use
  Company Number: JP-ABBOTT-08P-087-0480224-00

PATIENT
  Age: 77 Year
  Sex: Male

DRUGS (13)
  1. LEUPROLIDE ACETATE [Suspect]
     Indication: PROSTATE CANCER STAGE IV
     Route: 058
     Dates: start: 20060821, end: 20080201
  2. BICALUTAMIDE [Concomitant]
     Indication: PROSTATE CANCER STAGE IV
     Route: 048
     Dates: start: 20060802, end: 20070305
  3. FLUTAMIDE [Concomitant]
     Indication: PROSTATE CANCER STAGE IV
     Route: 048
     Dates: start: 20070305, end: 20070810
  4. ESTRAMUSTINE PHOSPHATE SODIUM [Concomitant]
     Indication: PROSTATE CANCER STAGE IV
     Route: 048
     Dates: start: 20070810, end: 20070828
  5. DEXAMETHASONE [Concomitant]
     Indication: PROSTATE CANCER STAGE IV
     Route: 048
     Dates: start: 20070824, end: 20080418
  6. MELOXICAM [Concomitant]
     Indication: METASTATIC PAIN
     Route: 048
     Dates: start: 20060821, end: 20080418
  7. ETIZOLAM [Concomitant]
     Indication: ANXIETY DISORDER
     Route: 048
     Dates: end: 20071202
  8. MORPHINE SULFATE INJ [Concomitant]
     Indication: METASTATIC PAIN
     Route: 048
     Dates: start: 20070501, end: 20070515
  9. FENTANYL [Concomitant]
     Indication: METASTATIC PAIN
     Route: 062
     Dates: start: 20070515, end: 20070818
  10. FENTANYL [Concomitant]
     Route: 062
     Dates: start: 20070821, end: 20071008
  11. FENTANYL [Concomitant]
     Route: 062
     Dates: start: 20071011, end: 20080427
  12. DOMPERIDONE [Concomitant]
     Indication: PROPHYLAXIS OF NAUSEA AND VOMITING
     Route: 048
     Dates: start: 20070530, end: 20080418
  13. VERAPAMIL HYDROCHLORIDE [Concomitant]
     Indication: METASTATIC PAIN
     Dosage: OPTIMAL DOSE 10 MG, AS REQUIRED
     Route: 054
     Dates: start: 20070729, end: 20080408

REACTIONS (1)
  - PROSTATE CANCER STAGE IV [None]
